FAERS Safety Report 4796823-X (Version None)
Quarter: 2005Q3

REPORT INFORMATION
  Report Type: 
  Country: None (occurrence: None)
  Receive Date: 20050916
  Receipt Date: 20050330
  Transmission Date: 20060218
  Serious: Yes (Other)
  Sender: FDA-Public Use
  Company Number: US-JNJFOC-20050102003

PATIENT
  Age: 43 Year
  Sex: Female

DRUGS (3)
  1. TOPAMAX [Suspect]
     Indication: DRUG USE FOR UNKNOWN INDICATION
     Dosage: 100 MG, ORAL
     Route: 048
     Dates: start: 20050103
  2. LIPITOR [Concomitant]
  3. DOXYCYCLINE [Concomitant]

REACTIONS (1)
  - FAECES DISCOLOURED [None]
